FAERS Safety Report 4364888-5 (Version None)
Quarter: 2004Q2

REPORT INFORMATION
  Report Type: 
  Country: None (occurrence: None)
  Receive Date: 20040526
  Receipt Date: 20040519
  Transmission Date: 20050107
  Serious: Yes (Death, Other)
  Sender: FDA-Public Use
  Company Number: US-BRISTOL-MYERS SQUIBB COMPANY-12590014

PATIENT
  Age: 28 Year
  Sex: Male

DRUGS (1)
  1. ETOPOSIDE [Suspect]

REACTIONS (4)
  - CARDIO-RESPIRATORY ARREST [None]
  - CHRONIC MYELOID LEUKAEMIA [None]
  - SYNCOPE [None]
  - TUMOUR LYSIS SYNDROME [None]
